FAERS Safety Report 7469614-9 (Version None)
Quarter: 2011Q2

REPORT INFORMATION
  Report Type: 
  Country: None (occurrence: None)
  Receive Date: 20110510
  Receipt Date: 20110505
  Transmission Date: 20111010
  Serious: Yes (Hospitalization)
  Sender: FDA-Public Use
  Company Number: IL-B.I. PHARMACEUTICALS,INC./RIDGEFIELD-2011-DE-02816DE

PATIENT
  Sex: Female
  Weight: 79 kg

DRUGS (11)
  1. SIMVALOR [Concomitant]
     Indication: HYPERLIPIDAEMIA
     Dosage: 1 ANZ
     Route: 048
     Dates: start: 19880101
  2. MONONIT [Concomitant]
     Indication: ANGINA PECTORIS
     Dosage: 1 ANZ
     Route: 048
     Dates: start: 19990101
  3. PRADAXA [Suspect]
     Indication: CEREBROVASCULAR ACCIDENT PROPHYLAXIS
     Route: 048
     Dates: start: 20090209, end: 20110304
  4. BISOTHIAZID [Concomitant]
     Indication: HYPERTENSION
     Dosage: 1 ANZ
     Route: 048
     Dates: start: 20090101
  5. NORVASC [Concomitant]
     Indication: HYPERTENSION
     Dosage: 1 ANZ
     Route: 048
     Dates: start: 19810101
  6. SEROXAT [Concomitant]
     Indication: ANXIETY
     Dosage: 1 ANZ
     Route: 048
     Dates: start: 20080101
  7. SOTALOL HCL [Concomitant]
     Indication: ARRHYTHMIA PROPHYLAXIS
     Dosage: 1 ANZ
     Route: 048
     Dates: start: 20060101
  8. PRADAXA [Suspect]
     Indication: ATRIAL FIBRILLATION
  9. ENALADEX [Concomitant]
     Indication: HYPERTENSION
     Dosage: 1 ANZ
     Route: 048
     Dates: start: 20100101
  10. TRIBEMIN [Concomitant]
     Dosage: 1 ANZ
     Route: 048
     Dates: start: 19910101
  11. FOSALAN [Concomitant]
     Indication: OSTEOPOROSIS
     Dosage: DAILY DOSE: WEEKLY
     Route: 048
     Dates: start: 20050101

REACTIONS (2)
  - SUBDURAL HAEMATOMA [None]
  - HEAD INJURY [None]
